FAERS Safety Report 20077151 (Version 1)
Quarter: 2021Q4

REPORT INFORMATION
  Report Type: Spontaneous
  Country: CZ (occurrence: CZ)
  Receive Date: 20211116
  Receipt Date: 20211116
  Transmission Date: 20220304
  Serious: Yes (Other)
  Sender: FDA-Public Use
  Company Number: CZ-KOREA IPSEN Pharma-2021-20311

PATIENT
  Age: 60 Year
  Sex: Male

DRUGS (9)
  1. BICALUTAMIDE [Suspect]
     Active Substance: BICALUTAMIDE
     Indication: Product used for unknown indication
     Dosage: UNK
     Route: 048
     Dates: start: 202004
  2. BICALUTAMIDE [Suspect]
     Active Substance: BICALUTAMIDE
     Dosage: UNK
     Route: 048
     Dates: start: 201506, end: 2018
  3. TRIPTORELIN [Suspect]
     Active Substance: TRIPTORELIN
     Indication: Prostate cancer
     Dosage: UNK UNK, Q3MONTHS(STRENGTH 11.25 MG )
     Route: 065
     Dates: start: 2015, end: 2018
  4. TRIPTORELIN [Suspect]
     Active Substance: TRIPTORELIN
     Dosage: UNK, Q3MONTHS(STRENGTH : 11.25 MG  )
     Dates: start: 202004, end: 202012
  5. APALUTAMIDE [Suspect]
     Active Substance: APALUTAMIDE
     Indication: Prostate cancer
     Dosage: 240 MILLIGRAM
     Dates: start: 202101, end: 202101
  6. TRIPTORELIN [Suspect]
     Active Substance: TRIPTORELIN
     Indication: Prostate cancer
     Dosage: STRENGTH : 22.5 MG(6 MONTH)
     Route: 065
     Dates: start: 202101, end: 202108
  7. TELMISARTAN [Concomitant]
     Active Substance: TELMISARTAN
     Dosage: (ADMINISTERED IN THE MORNING: 1-0-0)
  8. AMITRIPTYLINE HYDROCHLORIDE [Concomitant]
     Active Substance: AMITRIPTYLINE HYDROCHLORIDE
     Dosage: UNK(6 MONTH)
     Dates: start: 202004
  9. PRESID                             /00646501/ [Concomitant]
     Dosage: (ADMINISTERED IN THE MORNING: 1-0-0)

REACTIONS (1)
  - Neoplasm progression [Unknown]
